FAERS Safety Report 14639230 (Version 2)
Quarter: 2018Q2

REPORT INFORMATION
  Report Type: Report from Study
  Country: GB (occurrence: GB)
  Receive Date: 20180315
  Receipt Date: 20180404
  Transmission Date: 20180711
  Serious: Yes (Hospitalization, Other)
  Sender: FDA-Public Use
  Company Number: GB-ROCHE-2015397

PATIENT
  Sex: Female

DRUGS (6)
  1. AMITRIPTYLLINE [Concomitant]
     Active Substance: AMITRIPTYLINE
  2. LANSOPRAZOLE. [Concomitant]
     Active Substance: LANSOPRAZOLE
  3. METHOTREXATE. [Concomitant]
     Active Substance: METHOTREXATE
     Indication: RHEUMATOID ARTHRITIS
     Dosage: WEEKLY
     Route: 048
  4. ROACTEMRA [Suspect]
     Active Substance: TOCILIZUMAB
     Indication: RHEUMATOID ARTHRITIS
     Route: 058
     Dates: start: 20170421
  5. NAPROXEN. [Concomitant]
     Active Substance: NAPROXEN
  6. MORPHINE [Concomitant]
     Active Substance: MORPHINE
     Dosage: PATCHES
     Route: 065

REACTIONS (9)
  - Infection [Unknown]
  - Arthritis [Unknown]
  - Blood count abnormal [Unknown]
  - Pain [Unknown]
  - Neutropenia [Not Recovered/Not Resolved]
  - Rheumatoid arthritis [Unknown]
  - Femur fracture [Unknown]
  - Fracture [Unknown]
  - Back pain [Unknown]
